FAERS Safety Report 8334963-9 (Version None)
Quarter: 2012Q2

REPORT INFORMATION
  Report Type: 
  Country: None (occurrence: None)
  Receive Date: 20120503
  Receipt Date: 20120419
  Transmission Date: 20120825
  Serious: Yes (Other)
  Sender: FDA-Public Use
  Company Number: US-FRI-1000029854

PATIENT
  Sex: Female

DRUGS (6)
  1. LUAF41156 [Suspect]
     Indication: MAJOR DEPRESSION
     Dosage: 0.5 MG
     Route: 048
     Dates: start: 20110603, end: 20110907
  2. LUAF41156 [Suspect]
     Dosage: 3 MG
     Route: 048
     Dates: start: 20110908, end: 20120404
  3. CELEXA [Suspect]
     Indication: MAJOR DEPRESSION
     Dosage: 20 MG
     Route: 048
     Dates: start: 20110603, end: 20120404
  4. PHENAZOPYRIDINE HCL TAB [Concomitant]
     Dates: start: 20120323, end: 20120330
  5. LEVOTHYROXINE SODIUM [Concomitant]
     Dates: start: 20080101
  6. CIPROFLOXACIN HCL [Concomitant]
     Dates: start: 20120323, end: 20120330

REACTIONS (1)
  - ADENOCARCINOMA OF THE CERVIX [None]
